FAERS Safety Report 7475447-X (Version None)
Quarter: 2011Q2

REPORT INFORMATION
  Report Type: 
  Country: None (occurrence: None)
  Receive Date: 20110512
  Receipt Date: 20110505
  Transmission Date: 20111010
  Serious: Yes (Other)
  Sender: FDA-Public Use
  Company Number: DE-PFIZER INC-2011097454

PATIENT
  Age: 51 Year
  Sex: Female

DRUGS (1)
  1. ZIPRASIDONE HYDROCHLORIDE [Suspect]
     Dosage: 80 MG DAILY
     Dates: start: 20110205

REACTIONS (3)
  - BUNDLE BRANCH BLOCK RIGHT [None]
  - AUTOIMMUNE THYROIDITIS [None]
  - ELECTROCARDIOGRAM T WAVE INVERSION [None]
